FAERS Safety Report 6108228-X (Version None)
Quarter: 2009Q1

REPORT INFORMATION
  Report Type: 
  Country: None (occurrence: None)
  Receive Date: 20090303
  Receipt Date: 20090218
  Transmission Date: 20090719
  Serious: Yes (Hospitalization, Other)
  Sender: FDA-Public Use
  Company Number: 56910

PATIENT
  Age: 9 Year
  Sex: Male

DRUGS (1)
  1. CISPLATIN [Suspect]
     Indication: NASOPHARYNGEAL CANCER
     Dosage: 100MG/M2

REACTIONS (3)
  - APPENDICITIS [None]
  - MOUTH ULCERATION [None]
  - STOMATITIS [None]
